FAERS Safety Report 16197502 (Version 1)
Quarter: 2019Q2

REPORT INFORMATION
  Report Type: Spontaneous
  Country: US (occurrence: US)
  Receive Date: 20190413
  Receipt Date: 20190413
  Transmission Date: 20190711
  Serious: No
  Sender: FDA-Public Use
  Company Number: None

PATIENT
  Age: 23 Year
  Sex: Female
  Weight: 69.75 kg

DRUGS (1)
  1. AIMOVIG [Suspect]
     Active Substance: ERENUMAB-AOOE
     Indication: MIGRAINE
     Dates: start: 20190223, end: 20190223

REACTIONS (7)
  - Muscle spasms [None]
  - Abdominal pain upper [None]
  - Nausea [None]
  - Palpitations [None]
  - Vertigo [None]
  - Impaired work ability [None]
  - Cold sweat [None]

NARRATIVE: CASE EVENT DATE: 20190306
